FAERS Safety Report 8958550 (Version 1)
Quarter: 2012Q4

REPORT INFORMATION
  Report Type: Spontaneous
  Country: US (occurrence: None)
  Receive Date: 20121205
  Receipt Date: 20121205
  Transmission Date: 20130627
  Serious: Yes (Hospitalization)
  Sender: FDA-Public Use
  Company Number: None

PATIENT
  Sex: Female
  Weight: 120.9 kg

DRUGS (1)
  1. CYTARABINE [Suspect]
     Dates: end: 20121121

REACTIONS (2)
  - Pancytopenia [None]
  - Sepsis [None]
